FAERS Safety Report 13060988 (Version 1)
Quarter: 2016Q4

REPORT INFORMATION
  Report Type: Spontaneous
  Country: US (occurrence: US)
  Receive Date: 20161225
  Receipt Date: 20161225
  Transmission Date: 20170207
  Serious: No
  Sender: FDA-Public Use
  Company Number: US-ASTRAZENECA-2016SF31875

PATIENT
  Age: 11519 Day
  Sex: Female
  Weight: 68 kg

DRUGS (5)
  1. LANTUS [Concomitant]
     Active Substance: INSULIN GLARGINE
     Indication: BLOOD GLUCOSE ABNORMAL
  2. INSULIN- REGULAR [Concomitant]
     Indication: BLOOD GLUCOSE ABNORMAL
     Route: 058
  3. SYMLIN [Suspect]
     Active Substance: PRAMLINTIDE ACETATE
     Indication: BLOOD GLUCOSE INCREASED
     Route: 058
     Dates: start: 20160815
  4. HUMALOG [Concomitant]
     Active Substance: INSULIN LISPRO
     Indication: BLOOD GLUCOSE ABNORMAL
     Dosage: FREQUENCY DAILY
     Route: 058
  5. MIRENA [Concomitant]
     Active Substance: LEVONORGESTREL

REACTIONS (2)
  - Therapeutic response unexpected [Unknown]
  - Nausea [Not Recovered/Not Resolved]

NARRATIVE: CASE EVENT DATE: 20160815
